FAERS Safety Report 5243131-9 (Version None)
Quarter: 2007Q1

REPORT INFORMATION
  Report Type: 
  Country: None (occurrence: None)
  Receive Date: 20070221
  Receipt Date: 20070215
  Transmission Date: 20070707
  Serious: Yes (Other)
  Sender: FDA-Public Use
  Company Number: CA-SHR-CA-2007-005649

PATIENT
  Age: 48 Year
  Sex: Female
  Weight: 50.8 kg

DRUGS (4)
  1. MIRENA [Suspect]
     Dosage: 20 A?G/DAY, CONT
     Route: 015
     Dates: start: 20061201
  2. RANITIDINE [Concomitant]
     Dosage: 300 MG, UNK
     Route: 048
     Dates: start: 20030101
  3. VITAMINS [Concomitant]
  4. EVENING PRIMROSE OIL [Concomitant]

REACTIONS (6)
  - ABDOMINAL PAIN [None]
  - HAEMATOCRIT DECREASED [None]
  - HAEMOGLOBIN DECREASED [None]
  - IUCD COMPLICATION [None]
  - MALAISE [None]
  - VAGINAL HAEMORRHAGE [None]
